FAERS Safety Report 7450590-X (Version None)
Quarter: 2011Q2

REPORT INFORMATION
  Report Type: 
  Country: None (occurrence: None)
  Receive Date: 20110502
  Receipt Date: 20110419
  Transmission Date: 20111010
  Serious: Yes (Hospitalization, Other)
  Sender: FDA-Public Use
  Company Number: US-ELI_LILLY_AND_COMPANY-US201007002006

PATIENT
  Sex: Female

DRUGS (9)
  1. CLONAZEPAM [Concomitant]
  2. FORTEO [Suspect]
     Indication: OSTEOPOROSIS
     Dosage: 20 UG, QD
     Route: 065
     Dates: start: 20100701, end: 20101101
  3. LISINOPRIL [Concomitant]
  4. LEXAPRO [Concomitant]
  5. PRILOSEC [Concomitant]
  6. FORTEO [Suspect]
     Dosage: 20 UG, QD
     Route: 065
     Dates: start: 20101201, end: 20110201
  7. LIPITOR [Concomitant]
  8. FORTEO [Suspect]
     Dosage: 20 UG, QD
     Route: 065
     Dates: start: 20110301
  9. PLAQUENIL [Concomitant]

REACTIONS (4)
  - BLOOD CALCIUM INCREASED [None]
  - FALL [None]
  - RIB FRACTURE [None]
  - INJECTION SITE ERYTHEMA [None]
